FAERS Safety Report 10024394 (Version 1)
Quarter: 2014Q1

REPORT INFORMATION
  Report Type: Spontaneous
  Country: US (occurrence: US)
  Receive Date: 20140320
  Receipt Date: 20140320
  Transmission Date: 20141002
  Serious: Yes (Other)
  Sender: FDA-Public Use
  Company Number: US-ENDO PHARMACEUTICALS INC.-OPCR20140073

PATIENT
  Sex: Male

DRUGS (1)
  1. OPANA ER 10MG [Suspect]
     Indication: PAIN
     Route: 048
     Dates: start: 20140205

REACTIONS (3)
  - Wrong technique in drug usage process [Unknown]
  - Drug abuse [Unknown]
  - Dyspepsia [Unknown]
